FAERS Safety Report 22232255 (Version 2)
Quarter: 2023Q2

REPORT INFORMATION
  Report Type: Spontaneous
  Country: US (occurrence: US)
  Receive Date: 20230420
  Receipt Date: 20230421
  Transmission Date: 20230722
  Serious: No
  Sender: FDA-Public Use
  Company Number: US-BRISTOL-MYERS SQUIBB COMPANY-2023-056081

PATIENT
  Age: 69 Year
  Sex: Male
  Weight: 104.33 kg

DRUGS (2)
  1. REVLIMID [Suspect]
     Active Substance: LENALIDOMIDE
     Indication: Plasma cell myeloma
     Dosage: DOSE : 5MG;     FREQ : DAILY FOR (1) WEEK ON AND (1) WEEK OFF
     Route: 048
  2. REVLIMID [Suspect]
     Active Substance: LENALIDOMIDE
     Dosage: DOSE : 5MG;     FREQ : DAILY FOR (1) WEEK ON AND (1) WEEK OFF
     Route: 048

REACTIONS (11)
  - Nasopharyngitis [Unknown]
  - Bronchitis [Unknown]
  - Upper respiratory tract infection [Unknown]
  - Anxiety [Recovered/Resolved]
  - Paranoia [Recovered/Resolved]
  - Irritability [Recovered/Resolved]
  - Obsessive-compulsive disorder [Recovered/Resolved]
  - Sinusitis [Unknown]
  - Limb injury [Unknown]
  - Depression [Unknown]
  - Anger [Unknown]
